FAERS Safety Report 9933428 (Version 2)
Quarter: 2014Q1

REPORT INFORMATION
  Report Type: Report from Study
  Country: US (occurrence: US)
  Receive Date: 20140228
  Receipt Date: 20140228
  Transmission Date: 20141002
  Serious: No
  Sender: FDA-Public Use
  Company Number: US-MYLANLABS-2013S1019592

PATIENT
  Age: 51 Year
  Sex: Female
  Weight: 72.58 kg

DRUGS (6)
  1. AMNESTEEM CAPSULES [Suspect]
     Indication: EOSINOPHILIC PUSTULAR FOLLICULITIS
     Dates: start: 20130521, end: 2013
  2. AMNESTEEM CAPSULES [Suspect]
     Indication: OFF LABEL USE
     Dates: start: 20130521, end: 2013
  3. AMNESTEEM CAPSULES [Suspect]
     Indication: EOSINOPHILIC PUSTULAR FOLLICULITIS
     Dates: start: 2013, end: 20130730
  4. AMNESTEEM CAPSULES [Suspect]
     Indication: OFF LABEL USE
     Dates: start: 2013, end: 20130730
  5. PREDNISONE [Concomitant]
     Dosage: TAPERING DOSES
  6. VALTREX [Concomitant]

REACTIONS (3)
  - Drug ineffective [Recovered/Resolved]
  - Xerosis [Recovered/Resolved]
  - Hypoaesthesia oral [Recovered/Resolved]
